FAERS Safety Report 13675971 (Version 1)
Quarter: 2017Q2

REPORT INFORMATION
  Report Type: Spontaneous
  Country: US (occurrence: US)
  Receive Date: 20170620
  Receipt Date: 20170620
  Transmission Date: 20170830
  Serious: Yes (Disabling, Other)
  Sender: FDA-Public Use
  Company Number: None

PATIENT
  Age: 45 Year
  Sex: Female
  Weight: 56.25 kg

DRUGS (5)
  1. VALIUM [Suspect]
     Active Substance: DIAZEPAM
     Indication: PRODUCT USED FOR UNKNOWN INDICATION
  2. T3 THYROID LDN [Concomitant]
  3. BETA BLOCKER [Concomitant]
     Active Substance: UNSPECIFIED INGREDIENT
  4. CLONAZAPAM [Suspect]
     Active Substance: CLONAZEPAM
     Indication: ANXIETY
     Dosage: ?          QUANTITY:2 TABLET(S);?
     Route: 048
     Dates: start: 20101101, end: 20150915
  5. LEVOXYL [Concomitant]
     Active Substance: LEVOTHYROXINE SODIUM

REACTIONS (33)
  - Hypothermia [None]
  - Vertigo [None]
  - Cognitive disorder [None]
  - Fall [None]
  - Confusional state [None]
  - Sleep apnoea syndrome [None]
  - Feeling cold [None]
  - Skin burning sensation [None]
  - Neuropathy peripheral [None]
  - Dizziness [None]
  - Osteoporosis [None]
  - Hypoaesthesia [None]
  - Chills [None]
  - Tinnitus [None]
  - Blood pressure increased [None]
  - Vision blurred [None]
  - Crying [None]
  - Stress [None]
  - Suicidal ideation [None]
  - Osteopenia [None]
  - Burning sensation [None]
  - Insomnia [None]
  - Palpitations [None]
  - Dysphemia [None]
  - Depersonalisation/derealisation disorder [None]
  - Post-traumatic stress disorder [None]
  - Impaired quality of life [None]
  - Panic attack [None]
  - Balance disorder [None]
  - Derealisation [None]
  - Cyanosis [None]
  - Night sweats [None]
  - Withdrawal syndrome [None]

NARRATIVE: CASE EVENT DATE: 20150601
